FAERS Safety Report 12390305 (Version 5)
Quarter: 2016Q3

REPORT INFORMATION
  Report Type: Spontaneous
  Country: GB (occurrence: GB)
  Receive Date: 20160520
  Receipt Date: 20160729
  Transmission Date: 20161109
  Serious: Yes (Hospitalization, Disabling, Other)
  Sender: FDA-Public Use
  Company Number: GB-PFIZER INC-2016207554

PATIENT
  Age: 49 Year
  Sex: Female
  Weight: 57 kg

DRUGS (13)
  1. ENBREL [Suspect]
     Active Substance: ETANERCEPT
     Dosage: UNK
  2. ENBREL [Suspect]
     Active Substance: ETANERCEPT
     Dosage: UNK
  3. METHOTREXATE SODIUM. [Suspect]
     Active Substance: METHOTREXATE SODIUM
     Indication: RHEUMATOID ARTHRITIS
     Dosage: 10 MG, WEEKLY
     Route: 048
     Dates: start: 201009, end: 201603
  4. ENBREL [Suspect]
     Active Substance: ETANERCEPT
     Dosage: UNK
  5. ENBREL [Suspect]
     Active Substance: ETANERCEPT
     Dosage: UNK
  6. ARCOXIA [Concomitant]
     Active Substance: ETORICOXIB
     Indication: ANALGESIC THERAPY
     Dosage: UNK
     Route: 065
  7. ENBREL [Suspect]
     Active Substance: ETANERCEPT
     Dosage: 50 MG,WEEKLY
  8. ENBREL [Suspect]
     Active Substance: ETANERCEPT
     Dosage: UNK
  9. ENBREL [Suspect]
     Active Substance: ETANERCEPT
     Dosage: UNK
  10. FERROUS FUMARATE [Concomitant]
     Active Substance: FERROUS FUMARATE
     Indication: ANAEMIA
     Dosage: 40 MG, 2X/DAY (B.D.)
     Route: 048
     Dates: start: 201303
  11. ENBREL [Suspect]
     Active Substance: ETANERCEPT
     Indication: RHEUMATOID ARTHRITIS
     Dosage: 25 G, WEEKLY
     Route: 051
     Dates: start: 201402, end: 201603
  12. ENBREL [Suspect]
     Active Substance: ETANERCEPT
     Dosage: UNK
  13. FOLIC ACID. [Concomitant]
     Active Substance: FOLIC ACID
     Dosage: UNK, DAILY
     Route: 048
     Dates: start: 201006

REACTIONS (9)
  - Scar [Unknown]
  - Rash generalised [Not Recovered/Not Resolved]
  - Skin reaction [Not Recovered/Not Resolved]
  - Overdose [Unknown]
  - Post inflammatory pigmentation change [Recovering/Resolving]
  - Skin irritation [Not Recovered/Not Resolved]
  - Rash macular [Not Recovered/Not Resolved]
  - Lichenoid keratosis [Recovering/Resolving]
  - Rash pruritic [Recovering/Resolving]

NARRATIVE: CASE EVENT DATE: 201509
